FAERS Safety Report 5701835-5 (Version None)
Quarter: 2008Q2

REPORT INFORMATION
  Report Type: 
  Country: None (occurrence: None)
  Receive Date: 20080411
  Receipt Date: 20080411
  Transmission Date: 20081010
  Serious: Yes (Disabling)
  Sender: FDA-Public Use
  Company Number: None

PATIENT
  Sex: Female
  Weight: 52.1637 kg

DRUGS (1)
  1. HEPARIN LOCK-FLUSH [Suspect]
     Dosage: 500ML BID IV
     Route: 042
     Dates: start: 20080304, end: 20080410

REACTIONS (3)
  - BLOOD CULTURE POSITIVE [None]
  - DEVICE MALFUNCTION [None]
  - PHARMACEUTICAL PRODUCT COMPLAINT [None]
